FAERS Safety Report 9133717 (Version 1)
Quarter: 2013Q1

REPORT INFORMATION
  Report Type: Spontaneous
  Country: DE (occurrence: DE)
  Receive Date: 20130303
  Receipt Date: 20130303
  Transmission Date: 20140127
  Serious: Yes (Other)
  Sender: FDA-Public Use
  Company Number: DE-TEVA-388484GER

PATIENT
  Age: 35 Year
  Sex: Female

DRUGS (2)
  1. BISOPROLOL [Suspect]
     Indication: ARRHYTHMIA
     Dosage: 10 MILLIGRAM DAILY;
     Route: 048
     Dates: start: 20090714, end: 20100406
  2. THYRONAJOD [Concomitant]
     Indication: HYPOTHYROIDISM
     Dosage: POTASSIUM IODIDE 25 MICROGRAM/75 MICROGRAM LEVOTHYROXINE DAILY
     Route: 048

REACTIONS (1)
  - Oligohydramnios [Recovered/Resolved]
